FAERS Safety Report 5335395-8 (Version None)
Quarter: 2007Q2

REPORT INFORMATION
  Report Type: 
  Country: None (occurrence: None)
  Receive Date: 20070327
  Receipt Date: 20060911
  Transmission Date: 20071010
  Serious: Yes (Other)
  Sender: FDA-Public Use
  Company Number: HQWYE647113SEP06

PATIENT
  Age: 39 Year
  Sex: Male
  Weight: 67.19 kg

DRUGS (5)
  1. PROTONIX [Suspect]
     Indication: GASTROOESOPHAGEAL REFLUX DISEASE
     Dosage: 40 MG 1X PER 1 DAY ORAL
     Route: 048
     Dates: start: 20050601, end: 20060908
  2. EFFEXOR XR [Suspect]
     Indication: WEIGHT DECREASED
     Dosage: SEE IMAGE
     Route: 048
     Dates: start: 20060301, end: 20060301
  3. EFFEXOR XR [Suspect]
     Indication: WEIGHT DECREASED
     Dosage: SEE IMAGE
     Route: 048
     Dates: start: 20060301, end: 20060301
  4. UNKNOWN (UNKNOWN) [Concomitant]
  5. REGLAN [Concomitant]

REACTIONS (9)
  - ABDOMINAL PAIN UPPER [None]
  - CONDITION AGGRAVATED [None]
  - CONSTIPATION [None]
  - DIZZINESS [None]
  - DRUG WITHDRAWAL SYNDROME [None]
  - HEADACHE [None]
  - MYALGIA [None]
  - NAUSEA [None]
  - WEIGHT DECREASED [None]
